FAERS Safety Report 9915077 (Version 3)
Quarter: 2014Q2

REPORT INFORMATION
  Report Type: Report from Study
  Country: CL (occurrence: CL)
  Receive Date: 20140220
  Receipt Date: 20140411
  Transmission Date: 20141212
  Serious: Yes (Hospitalization, Other)
  Sender: FDA-Public Use
  Company Number: PHHY2014CL021118

PATIENT
  Age: 37 Year
  Sex: Male

DRUGS (1)
  1. LEPONEX [Suspect]
     Dosage: 200 MG, UNK

REACTIONS (3)
  - Psychiatric decompensation [Not Recovered/Not Resolved]
  - Dependence [Not Recovered/Not Resolved]
  - Alcohol abuse [Not Recovered/Not Resolved]
